FAERS Safety Report 12071860 (Version 1)
Quarter: 2016Q1

REPORT INFORMATION
  Report Type: Report from Study
  Country: US (occurrence: US)
  Receive Date: 20160212
  Receipt Date: 20160212
  Transmission Date: 20160526
  Serious: Yes (Death, Other)
  Sender: FDA-Public Use
  Company Number: US-GILEAD-2016-0194848

PATIENT
  Age: 47 Year
  Sex: Female

DRUGS (18)
  1. METOCLOPRAMIDE. [Concomitant]
     Active Substance: METOCLOPRAMIDE
  2. REMODULIN [Suspect]
     Active Substance: TREPROSTINIL
     Dosage: 34 NG, Q1MINUTE
     Route: 065
     Dates: start: 20151201
  3. LORAZEPAM. [Concomitant]
     Active Substance: LORAZEPAM
  4. DIPHENHYDRAMINE. [Concomitant]
     Active Substance: DIPHENHYDRAMINE
  5. SILDENAFIL. [Suspect]
     Active Substance: SILDENAFIL
     Indication: PRODUCT USED FOR UNKNOWN INDICATION
     Dosage: 20 MG, TID
     Route: 065
  6. VIIBRYD [Concomitant]
     Active Substance: VILAZODONE HYDROCHLORIDE
  7. ALLOPURINOL. [Concomitant]
     Active Substance: ALLOPURINOL
  8. FUROSEMIDE. [Concomitant]
     Active Substance: FUROSEMIDE
  9. SINGULAIR [Concomitant]
     Active Substance: MONTELUKAST SODIUM
  10. AMBRISENTAN [Suspect]
     Active Substance: AMBRISENTAN
     Indication: PULMONARY HYPERTENSION
     Dosage: 10 MG, QD
     Route: 065
     Dates: start: 20121107
  11. SILDENAFIL. [Suspect]
     Active Substance: SILDENAFIL
     Route: 065
  12. GABAPENTIN. [Concomitant]
     Active Substance: GABAPENTIN
  13. CELEXA [Concomitant]
     Active Substance: CITALOPRAM HYDROBROMIDE
  14. NORCO [Concomitant]
     Active Substance: ACETAMINOPHEN\HYDROCODONE BITARTRATE
  15. DULERA [Concomitant]
     Active Substance: FORMOTEROL FUMARATE DIHYDRATE\MOMETASONE FUROATE
  16. SPIRONOLACTONE. [Concomitant]
     Active Substance: SPIRONOLACTONE
  17. REMODULIN [Suspect]
     Active Substance: TREPROSTINIL
     Indication: PRODUCT USED FOR UNKNOWN INDICATION
     Dosage: 34 NG, QD
     Route: 065
     Dates: start: 20151201
  18. SIMVASTATIN. [Concomitant]
     Active Substance: SIMVASTATIN

REACTIONS (1)
  - Cardiac failure [Fatal]
